FAERS Safety Report 8838806 (Version 1)
Quarter: 2012Q4

REPORT INFORMATION
  Report Type: 
  Country: US (occurrence: US)
  Receive Date: 20121014
  Receipt Date: 20121014
  Transmission Date: 20130627
  Serious: Yes (Hospitalization)
  Sender: FDA-Public Use
  Company Number: US-US-EMD SERONO, INC.-7112997

PATIENT
  Age: 30 Year
  Sex: Female

DRUGS (2)
  1. REBIF [Suspect]
     Indication: RELAPSING-REMITTING MULTIPLE SCLEROSIS
     Route: 058
     Dates: start: 201107, end: 20120130
  2. REBIF [Suspect]
     Route: 058

REACTIONS (5)
  - Multiple sclerosis relapse [Recovering/Resolving]
  - Hot flush [Recovering/Resolving]
  - Headache [Recovering/Resolving]
  - Injection site reaction [Unknown]
  - Influenza like illness [Recovering/Resolving]
